FAERS Safety Report 7347911-5 (Version None)
Quarter: 2011Q1

REPORT INFORMATION
  Report Type: 
  Country: None (occurrence: None)
  Receive Date: 20110311
  Receipt Date: 20110307
  Transmission Date: 20110831
  Serious: Yes (Other)
  Sender: FDA-Public Use
  Company Number: US-ABBOTT-11P-163-0710541-00

PATIENT
  Sex: Female
  Weight: 68.1 kg

DRUGS (18)
  1. NIASPAN [Suspect]
     Indication: PRODUCT USED FOR UNKNOWN INDICATION
     Dosage: AT BEDTIME
     Route: 048
  2. LOPRESSOR [Concomitant]
     Indication: HYPERTENSION
  3. VERAMYST [Concomitant]
     Indication: MULTIPLE ALLERGIES
  4. IMDUR [Concomitant]
     Indication: CORONARY ARTERIAL STENT INSERTION
  5. TOPAMAX [Concomitant]
     Indication: ESSENTIAL TREMOR
  6. ARIMIDEX [Concomitant]
     Indication: BREAST CANCER
  7. DAXALANT [Concomitant]
     Indication: GASTROOESOPHAGEAL REFLUX DISEASE
  8. BONIVA [Concomitant]
     Indication: BONE DISORDER
  9. FUROSEMIDE [Concomitant]
     Indication: DIURETIC THERAPY
  10. CYMBALTA [Concomitant]
     Indication: FIBROMYALGIA
  11. PLAVIX [Concomitant]
     Indication: CORONARY ARTERIAL STENT INSERTION
  12. VITAMIN D [Concomitant]
     Indication: VITAMIN SUPPLEMENTATION
  13. LANTUS [Concomitant]
     Indication: DIABETES MELLITUS
  14. DITROPAN LA [Concomitant]
     Indication: MICTURITION URGENCY
  15. CYMBALTA [Concomitant]
     Indication: DEPRESSION
  16. TOPAMAX [Concomitant]
     Indication: MIGRAINE
  17. SINGULAIR [Concomitant]
     Indication: MULTIPLE ALLERGIES
  18. CRESTOR [Concomitant]
     Indication: BLOOD CHOLESTEROL INCREASED

REACTIONS (10)
  - CHEST PAIN [None]
  - BREAST CANCER [None]
  - MUSCLE SPASMS [None]
  - OESOPHAGEAL DISORDER [None]
  - FLUSHING [None]
  - MUSCLE TWITCHING [None]
  - SKIN BURNING SENSATION [None]
  - CORONARY ARTERY OCCLUSION [None]
  - DYSPHAGIA [None]
  - MAMMOGRAM ABNORMAL [None]
